FAERS Safety Report 24093160 (Version 3)
Quarter: 2024Q3

REPORT INFORMATION
  Report Type: Report from Study
  Country: CH (occurrence: CH)
  Receive Date: 20240715
  Receipt Date: 20240919
  Transmission Date: 20241017
  Serious: Yes (Life-Threatening, Hospitalization, Other)
  Sender: NOVARTIS
  Company Number: CH-002147023-NVSC2022CH156897

PATIENT
  Age: 63 Year
  Sex: Female
  Weight: 70.2 kg

DRUGS (9)
  1. KISQALI [Suspect]
     Active Substance: RIBOCICLIB
     Indication: Hormone receptor positive HER2 negative breast cancer
     Dosage: 400 MG, QD (3 WEEKS ON, 1 WEEK OFF)
     Route: 048
     Dates: start: 20211230
  2. KISQALI [Suspect]
     Active Substance: RIBOCICLIB
     Dosage: 600 MG, QD (DAY 21, DAY 22-28 OFF)
     Route: 048
     Dates: start: 20211231
  3. KISQALI [Suspect]
     Active Substance: RIBOCICLIB
     Dosage: 400 MG
     Route: 065
     Dates: start: 20220301
  4. KISQALI [Suspect]
     Active Substance: RIBOCICLIB
     Dosage: 600MG 3 WEEKS ON/ 1 WEEK OFF
     Route: 048
     Dates: start: 20230719, end: 20230815
  5. KISQALI [Suspect]
     Active Substance: RIBOCICLIB
     Dosage: UNK (1 WEEK REGULAR PAUSE DUE TO TREATMENT REGIME (3WEEKS ON, 1 WEEK  OFF))
     Route: 065
     Dates: end: 20240403
  6. KISQALI [Suspect]
     Active Substance: RIBOCICLIB
     Dosage: UNK
     Route: 065
     Dates: end: 20240709
  7. LETROZOLE [Suspect]
     Active Substance: LETROZOLE
     Indication: Hormone receptor positive HER2 negative breast cancer
     Dosage: 2.5 MG, QD
     Route: 048
     Dates: start: 20211123
  8. FILGRASTIM [Concomitant]
     Active Substance: FILGRASTIM
     Indication: Product used for unknown indication
     Dosage: UNK, ONCE/SINGLE (30 MIO. IU, ONCE)
     Route: 065
     Dates: start: 20240709, end: 20240709
  9. RITUXIMAB [Concomitant]
     Active Substance: RITUXIMAB
     Indication: Product used for unknown indication
     Dosage: 2X1 G (EVERY 7 MONTHS)
     Route: 042

REACTIONS (25)
  - COVID-19 pneumonia [Recovered/Resolved]
  - Neutrophil count decreased [Recovered/Resolved]
  - Neutrophil count decreased [Recovered/Resolved]
  - COVID-19 [Recovering/Resolving]
  - Cough [Recovering/Resolving]
  - Pyrexia [Recovering/Resolving]
  - Ageusia [Recovering/Resolving]
  - Nausea [Recovering/Resolving]
  - Vomiting [Recovering/Resolving]
  - Dyspnoea exertional [Recovering/Resolving]
  - Device related thrombosis [Recovered/Resolved]
  - Leukopenia [Recovered/Resolved]
  - Neutropenia [Recovered/Resolved]
  - White blood cell count decreased [Recovered/Resolved]
  - Influenza like illness [Recovered/Resolved]
  - Pyrexia [Recovered/Resolved]
  - Headache [Recovered/Resolved]
  - COVID-19 [Recovered/Resolved]
  - Nasopharyngitis [Recovered/Resolved]
  - Chest pain [Recovered/Resolved]
  - Catheter site haematoma [Recovered/Resolved]
  - Influenza like illness [Recovered/Resolved]
  - Oropharyngeal pain [Recovered/Resolved]
  - Back pain [Recovered/Resolved]
  - Musculoskeletal discomfort [Recovered/Resolved]

NARRATIVE: CASE EVENT DATE: 20220127
